FAERS Safety Report 8283975-2 (Version None)
Quarter: 2012Q2

REPORT INFORMATION
  Report Type: 
  Country: None (occurrence: None)
  Receive Date: 20120413
  Receipt Date: 20110726
  Transmission Date: 20120825
  Serious: No
  Sender: FDA-Public Use
  Company Number: US-ASTRAZENECA-2011SE35917

PATIENT
  Age: 72 Year
  Sex: Female

DRUGS (1)
  1. NEXIUM [Suspect]
     Indication: PHARYNGITIS
     Route: 048

REACTIONS (2)
  - OFF LABEL USE [None]
  - OESOPHAGEAL INFECTION [None]
